FAERS Safety Report 7884004-2 (Version None)
Quarter: 2011Q4

REPORT INFORMATION
  Report Type: 
  Country: None (occurrence: None)
  Receive Date: 20111102
  Receipt Date: 20111026
  Transmission Date: 20120403
  Serious: Yes (Hospitalization, Other)
  Sender: FDA-Public Use
  Company Number: PHHY2011IT95493

PATIENT
  Age: 4 Year
  Sex: Male

DRUGS (2)
  1. RED BLOOD CELLS [Concomitant]
  2. EXJADE [Suspect]
     Indication: IRON OVERLOAD
     Dosage: 38.5 MG/KG, DAILY
     Route: 048

REACTIONS (2)
  - GAIT DISTURBANCE [None]
  - ABDOMINAL PAIN [None]
